FAERS Safety Report 18371287 (Version 1)
Quarter: 2020Q4

REPORT INFORMATION
  Report Type: Spontaneous
  Country: KZ (occurrence: KZ)
  Receive Date: 20201012
  Receipt Date: 20201012
  Transmission Date: 20210114
  Serious: Yes (Hospitalization)
  Sender: FDA-Public Use
  Company Number: KZ-NOVOPROD-758791

PATIENT
  Sex: Female

DRUGS (1)
  1. VICTOZA [Suspect]
     Active Substance: LIRAGLUTIDE
     Indication: PRODUCT USED FOR UNKNOWN INDICATION
     Dosage: 1.8 MG (SINCE APRIL)
     Route: 065

REACTIONS (2)
  - Product prescribing error [Unknown]
  - Diabetic ketoacidosis [Unknown]
